FAERS Safety Report 9248620 (Version 1)
Quarter: 2013Q2

REPORT INFORMATION
  Report Type: Spontaneous
  Country: US (occurrence: None)
  Receive Date: 20130419
  Receipt Date: 20130419
  Transmission Date: 20140414
  Serious: Yes (Hospitalization)
  Sender: FDA-Public Use
  Company Number: None

PATIENT
  Age: 52 Year
  Sex: Female
  Weight: 54.7 kg

DRUGS (3)
  1. CARBOPLATIN [Suspect]
     Dates: end: 20100618
  2. TOPOTECAN [Suspect]
     Dates: end: 20100618
  3. MORPHINE [Concomitant]

REACTIONS (1)
  - Mucosal inflammation [None]
